FAERS Safety Report 5297805-4 (Version None)
Quarter: 2007Q2

REPORT INFORMATION
  Report Type: 
  Country: None (occurrence: None)
  Receive Date: 20070413
  Receipt Date: 20070413
  Transmission Date: 20071010
  Serious: Yes (Death)
  Sender: FDA-Public Use
  Company Number: None

PATIENT
  Sex: Male
  Weight: 56.246 kg

DRUGS (2)
  1. MORPHINE [Suspect]
     Indication: PROSTATE CANCER METASTATIC
     Dosage: 45MG SR BID PO
     Route: 048
     Dates: start: 20061001, end: 20070225
  2. MORPHINE [Suspect]
     Indication: METASTASES TO BONE
     Dosage: 30MG IMMEDIATE RELEASE Q 4-6HRS PO
     Route: 048
     Dates: start: 20070225, end: 20070225

REACTIONS (11)
  - BONE PAIN [None]
  - CANCER PAIN [None]
  - DIARRHOEA [None]
  - DISCOMFORT [None]
  - LOSS OF CONSCIOUSNESS [None]
  - MEDICATION ERROR [None]
  - OVERDOSE [None]
  - PAIN [None]
  - RESPIRATORY DEPRESSION [None]
  - URINARY TRACT INFECTION [None]
  - WEIGHT INCREASED [None]
